FAERS Safety Report 9836143 (Version 1)
Quarter: 2014Q1

REPORT INFORMATION
  Report Type: Spontaneous
  Country: RU (occurrence: RU)
  Receive Date: 20140123
  Receipt Date: 20140123
  Transmission Date: 20141002
  Serious: Yes (Other)
  Sender: FDA-Public Use
  Company Number: RU-PFIZER INC-2014015110

PATIENT
  Age: 60 Year
  Sex: Male

DRUGS (1)
  1. XALATAN [Suspect]
     Indication: GLAUCOMA
     Dosage: 1 DROP INTO EACH EYE, 2X/DAY
     Route: 047
     Dates: start: 2012

REACTIONS (4)
  - Off label use [Unknown]
  - Visual acuity reduced [Unknown]
  - Eye irritation [Unknown]
  - Product closure issue [Unknown]
